FAERS Safety Report 8784399 (Version 1)
Quarter: 2012Q4

REPORT INFORMATION
  Report Type: 
  Country: NL (occurrence: NL)
  Receive Date: 20120913
  Receipt Date: 20120913
  Transmission Date: 20130627
  Serious: Yes (Hospitalization)
  Sender: FDA-Public Use
  Company Number: NL-PFIZER INC-2012221113

PATIENT
  Age: 60 Year
  Sex: Female
  Weight: 88 kg

DRUGS (7)
  1. GENOTROPIN [Suspect]
     Indication: HYPOPITUITARISM
     Dosage: 0.2 mg, 1x/day (7 injections/week)
     Route: 058
     Dates: start: 20050131
  2. MARVELON [Concomitant]
     Indication: DYSMENORRHOEA
     Dosage: UNK
     Dates: start: 19970315
  3. LEVOTHYROXINE [Concomitant]
     Indication: BLOOD THYROID STIMULATING HORMONE DECREASED
     Dosage: UNK
     Dates: start: 19980927
  4. HYDROCORTISONE [Concomitant]
     Indication: BLOOD CORTICOTROPHIN DECREASED
     Dosage: UNK
     Dates: start: 20010215
  5. CALCICHEW [Concomitant]
     Indication: OSTEOPOROSIS
     Dosage: UNK
     Dates: start: 20090520
  6. SIMVASTATIN [Concomitant]
     Indication: HYPERCHOLESTEROLAEMIA
     Dosage: UNK
     Dates: start: 20090520
  7. THYRAX [Concomitant]
     Indication: HYPOTHYROIDISM
     Dosage: UNK
     Dates: start: 20090520

REACTIONS (1)
  - Varicose vein [Unknown]
